FAERS Safety Report 14574062 (Version 1)
Quarter: 2018Q1

REPORT INFORMATION
  Report Type: Spontaneous
  Country: SG (occurrence: SG)
  Receive Date: 20180226
  Receipt Date: 20180226
  Transmission Date: 20180509
  Serious: Yes (Other)
  Sender: FDA-Public Use
  Company Number: SG-009507513-1802SGP011279

PATIENT
  Age: 50 Year
  Sex: Female

DRUGS (1)
  1. PEMBROLIZUMAB. [Suspect]
     Active Substance: PEMBROLIZUMAB
     Indication: CERVIX CANCER METASTATIC
     Dosage: 2 MG/KG, Q3W

REACTIONS (6)
  - Hypophysitis [Recovered/Resolved]
  - Off label use [Unknown]
  - Cortisol deficiency [Recovered/Resolved]
  - Fatigue [Unknown]
  - Hypopituitarism [Recovered/Resolved]
  - Drug effective for unapproved indication [Unknown]
